FAERS Safety Report 6568922-3 (Version None)
Quarter: 2010Q1

REPORT INFORMATION
  Report Type: 
  Country: None (occurrence: None)
  Receive Date: 20100203
  Receipt Date: 20100122
  Transmission Date: 20100710
  Serious: Yes (Other)
  Sender: FDA-Public Use
  Company Number: US-PFIZER INC-2009312680

PATIENT
  Sex: Male
  Weight: 72.56 kg

DRUGS (2)
  1. GEODON [Suspect]
     Indication: BIPOLAR I DISORDER
     Dosage: UNK
     Route: 048
     Dates: start: 20091109
  2. GEODON [Suspect]
     Indication: DEPRESSION

REACTIONS (3)
  - ANXIETY [None]
  - RESTLESSNESS [None]
  - SEDATION [None]
